FAERS Safety Report 18598292 (Version 2)
Quarter: 2021Q1

REPORT INFORMATION
  Report Type: Spontaneous
  Country: US (occurrence: US)
  Receive Date: 20201209
  Receipt Date: 20210213
  Transmission Date: 20210419
  Serious: No
  Sender: FDA-Public Use
  Company Number: US-JNJFOC-20201203674

PATIENT
  Age: 77 Year
  Sex: Female
  Weight: 62.65 kg

DRUGS (2)
  1. WOMENS ROGAINE UNSCENTED [Suspect]
     Active Substance: MINOXIDIL
     Indication: ALOPECIA
     Dosage: DOSE AND FREQUENCY ? HALF OF CUP (ONCE A DAY)?THE PRODUCT LAST USED ON?29?NOV?2020
     Route: 061
     Dates: start: 20201030
  2. WOMENS ROGAINE UNSCENTED [Suspect]
     Active Substance: MINOXIDIL
     Dosage: DOSE AND FREQUENCY ? HALF OF CUP (ONCE A DAY)?THE PRODUCT LAST USED ON?29?NOV?2020
     Route: 061

REACTIONS (2)
  - Alopecia [Recovering/Resolving]
  - Application site hyperaesthesia [Recovered/Resolved]

NARRATIVE: CASE EVENT DATE: 20201030
